FAERS Safety Report 23603391 (Version 1)
Quarter: 2024Q1

REPORT INFORMATION
  Report Type: Spontaneous
  Country: CO (occurrence: CO)
  Receive Date: 20240307
  Receipt Date: 20240307
  Transmission Date: 20240409
  Serious: Yes (Hospitalization, Other)
  Sender: FDA-Public Use
  Company Number: CO-NOVOPROD-1184407

PATIENT
  Age: 68 Year
  Sex: Male
  Weight: 64 kg

DRUGS (3)
  1. INSULIN HUMAN [Suspect]
     Active Substance: INSULIN HUMAN
     Indication: Type 2 diabetes mellitus
     Dosage: 10 IU, QD
     Dates: start: 202310
  2. ETORICOXIB [Concomitant]
     Active Substance: ETORICOXIB
     Indication: Pain
     Dosage: 1 TABLET QD
     Dates: start: 202312
  3. GLYBURIDE [Concomitant]
     Active Substance: GLYBURIDE
     Indication: Type 2 diabetes mellitus
     Dosage: 1 TABLET AT LUNCH
     Dates: start: 2021

REACTIONS (4)
  - Abdominal pain upper [Unknown]
  - Decreased appetite [Unknown]
  - Vomiting [Unknown]
  - Pyrexia [Unknown]
